FAERS Safety Report 5776192-9 (Version None)
Quarter: 2008Q2

REPORT INFORMATION
  Report Type: 
  Country: None (occurrence: None)
  Receive Date: 20080613
  Receipt Date: 20080610
  Transmission Date: 20081010
  Serious: No
  Sender: FDA-Public Use
  Company Number: 2008SP007851

PATIENT
  Sex: Female

DRUGS (4)
  1. DESLORATADINE [Suspect]
     Indication: DRUG USE FOR UNKNOWN INDICATION
     Dosage: 5 MG;QD
     Dates: start: 20080415, end: 20080418
  2. TAHOR [Concomitant]
  3. RAMIPRIL [Concomitant]
  4. TRIPHASIL-21 [Concomitant]

REACTIONS (3)
  - ALLERGIC OEDEMA [None]
  - PRURITUS GENERALISED [None]
  - SKIN PLAQUE [None]
